FAERS Safety Report 7046921-5 (Version None)
Quarter: 2010Q4

REPORT INFORMATION
  Report Type: 
  Country: None (occurrence: None)
  Receive Date: 20101015
  Receipt Date: 20101013
  Transmission Date: 20110411
  Serious: Yes (Death, Hospitalization)
  Sender: FDA-Public Use
  Company Number: PHHY2010US23778

PATIENT
  Sex: Male

DRUGS (4)
  1. EXJADE [Suspect]
     Indication: NEOPLASM MALIGNANT
     Dosage: 1250 MG, QD
     Route: 048
  2. EXJADE [Suspect]
     Indication: IRON OVERLOAD
  3. CHEMOTHERAPEUTICS NOS [Concomitant]
     Dosage: UNK
     Dates: start: 20100301
  4. TRANSFUSIONS [Concomitant]
     Dosage: UNK
     Dates: start: 20100301

REACTIONS (2)
  - MALIGNANT NEOPLASM PROGRESSION [None]
  - SERUM FERRITIN INCREASED [None]
